FAERS Safety Report 23632722 (Version 1)
Quarter: 2024Q1

REPORT INFORMATION
  Report Type: Spontaneous
  Country: IL (occurrence: IL)
  Receive Date: 20240314
  Receipt Date: 20240314
  Transmission Date: 20240410
  Serious: Yes (Hospitalization)
  Sender: FDA-Public Use
  Company Number: IL-ARGENX-2023-ARGX-IL004543

PATIENT

DRUGS (1)
  1. VYVGART [Suspect]
     Active Substance: EFGARTIGIMOD ALFA-FCAB
     Indication: Myasthenia gravis
     Dosage: UNK
     Route: 065
     Dates: start: 20231217

REACTIONS (7)
  - Condition aggravated [Unknown]
  - Fall [Unknown]
  - Swelling [Unknown]
  - Pharyngeal swelling [Unknown]
  - Paraesthesia [Unknown]
  - Paraesthesia oral [Unknown]
  - Dysstasia [Unknown]
